FAERS Safety Report 15957183 (Version 1)
Quarter: 2019Q1

REPORT INFORMATION
  Report Type: Spontaneous
  Country: US (occurrence: US)
  Receive Date: 20190123
  Receipt Date: 20190123
  Transmission Date: 20190417
  Serious: Yes (Hospitalization)
  Sender: FDA-Public Use
  Company Number: None

PATIENT
  Age: 76 Year
  Sex: Male
  Weight: 78.6 kg

DRUGS (1)
  1. TEMOZOLOMIDE. [Suspect]
     Active Substance: TEMOZOLOMIDE
     Dates: end: 20171010

REACTIONS (9)
  - Pneumonia [None]
  - Asthenia [None]
  - Tachycardia [None]
  - Sepsis [None]
  - Hypertension [None]
  - Confusional state [None]
  - Memory impairment [None]
  - Visual impairment [None]
  - Tachypnoea [None]

NARRATIVE: CASE EVENT DATE: 20181108
